FAERS Safety Report 19086471 (Version 1)
Quarter: 2021Q2

REPORT INFORMATION
  Report Type: Spontaneous
  Country: US (occurrence: US)
  Receive Date: 20210401
  Receipt Date: 20210401
  Transmission Date: 20210717
  Serious: Yes (Life-Threatening, Disabling)
  Sender: FDA-Public Use
  Company Number: None

PATIENT
  Age: 41 Year
  Sex: Male
  Weight: 103.5 kg

DRUGS (1)
  1. AVELOX [Suspect]
     Active Substance: MOXIFLOXACIN HYDROCHLORIDE
     Indication: PNEUMONIA
     Route: 048
     Dates: start: 20190901, end: 20190909

REACTIONS (7)
  - Tremor [None]
  - Fatigue [None]
  - Arthralgia [None]
  - Tendon pain [None]
  - Small fibre neuropathy [None]
  - Muscle twitching [None]
  - Anxiety [None]

NARRATIVE: CASE EVENT DATE: 20190901
